FAERS Safety Report 20223096 (Version 2)
Quarter: 2022Q1

REPORT INFORMATION
  Report Type: Report from Study
  Country: BD (occurrence: BD)
  Receive Date: 20211223
  Receipt Date: 20220110
  Transmission Date: 20220423
  Serious: Yes (Death, Hospitalization)
  Sender: FDA-Public Use
  Company Number: BD-NOVARTISPH-NVSC2021BD294191

PATIENT
  Age: 80 Year
  Sex: Male

DRUGS (5)
  1. EXELON [Suspect]
     Active Substance: RIVASTIGMINE TARTRATE
     Indication: Dementia Alzheimer^s type
     Dosage: 1 DOSAGE FORM, QD
     Route: 062
     Dates: start: 2020, end: 20210920
  2. NOVORAPID [Concomitant]
     Active Substance: INSULIN ASPART
     Indication: Diabetes mellitus
     Dosage: UNK, TID
     Route: 058
     Dates: start: 2019
  3. TRESIBA [Concomitant]
     Active Substance: INSULIN DEGLUDEC
     Indication: Product used for unknown indication
     Dosage: UNK, QD
     Route: 058
     Dates: start: 2019
  4. UROMAX D [Concomitant]
     Indication: Benign prostatic hyperplasia
     Dosage: UNK, BID
     Route: 065
     Dates: start: 2019, end: 20210920
  5. AVOLAC [Concomitant]
     Indication: Constipation
     Dosage: UNK, QD
     Route: 065
     Dates: start: 2019

REACTIONS (1)
  - Pneumonia aspiration [Fatal]

NARRATIVE: CASE EVENT DATE: 20210921
